FAERS Safety Report 7210879-6 (Version None)
Quarter: 2011Q1

REPORT INFORMATION
  Report Type: 
  Country: None (occurrence: None)
  Receive Date: 20110105
  Receipt Date: 20101218
  Transmission Date: 20110831
  Serious: No
  Sender: FDA-Public Use
  Company Number: US-B.I. PHARMACEUTICALS,INC./RIDGEFIELD-2010-BP-15118BP

PATIENT
  Age: 71 Year
  Sex: Female

DRUGS (8)
  1. PRADAXA [Suspect]
     Indication: ATRIAL FIBRILLATION
     Dosage: 300 MG
     Route: 048
     Dates: start: 20101123
  2. JANUVIA [Concomitant]
     Indication: DIABETES MELLITUS
     Dosage: 100 MG
     Route: 048
     Dates: start: 20070101
  3. METFORMIN [Concomitant]
     Indication: BLOOD CHOLESTEROL INCREASED
     Dosage: 1500 MG
     Route: 048
     Dates: start: 20050101
  4. VITAMIN D [Concomitant]
     Indication: MEDICAL DIET
     Dosage: 2000 U
     Route: 048
     Dates: start: 20080101
  5. LOTRIL [Concomitant]
     Indication: HYPERTENSION
     Dosage: 10/40
     Route: 048
     Dates: start: 20000101
  6. METOPROLOL TARTRATE [Suspect]
     Indication: HYPERTENSION
     Dosage: 50 MG
     Route: 048
     Dates: start: 20101123
  7. DIGOXIN [Suspect]
     Indication: CARDIAC DISORDER
     Dosage: 0.125 MG
     Route: 048
     Dates: start: 20101123
  8. ZOCOR [Concomitant]
     Indication: BLOOD CHOLESTEROL INCREASED
     Dosage: 40 MG
     Route: 048
     Dates: start: 20050101

REACTIONS (1)
  - ARTHRALGIA [None]
